FAERS Safety Report 15255715 (Version 1)
Quarter: 2018Q3

REPORT INFORMATION
  Report Type: Spontaneous
  Country: US (occurrence: US)
  Receive Date: 20180718
  Receipt Date: 20180718
  Transmission Date: 20181010
  Serious: Yes (Other)
  Sender: FDA-Public Use
  Company Number: None

PATIENT
  Age: 71 Year
  Sex: Male
  Weight: 166 kg

DRUGS (3)
  1. SYNTHROID [Suspect]
     Active Substance: LEVOTHYROXINE SODIUM
     Indication: HYPOTHYROIDISM
     Dosage: ?          QUANTITY:1 TABLET(S);?
     Route: 048
     Dates: start: 20180702
  2. ASPIRIN. [Concomitant]
     Active Substance: ASPIRIN
  3. CENTRUM SILVER VITAMIN [Concomitant]

REACTIONS (3)
  - Insomnia [None]
  - Heart rate irregular [None]
  - Therapy change [None]

NARRATIVE: CASE EVENT DATE: 20180711
